FAERS Safety Report 22007121 (Version 1)
Quarter: 2023Q1

REPORT INFORMATION
  Report Type: Spontaneous
  Country: US (occurrence: US)
  Receive Date: 20230217
  Receipt Date: 20230217
  Transmission Date: 20230417
  Serious: Yes (Hospitalization, Other)
  Sender: FDA-Public Use
  Company Number: US-009507513-1911USA002119

PATIENT
  Sex: Female
  Weight: 92.063 kg

DRUGS (3)
  1. FOSAMAX [Suspect]
     Active Substance: ALENDRONATE SODIUM
     Indication: Osteoporosis prophylaxis
     Dosage: UNK
     Route: 048
     Dates: start: 1999, end: 2009
  2. FOSAMAX [Suspect]
     Active Substance: ALENDRONATE SODIUM
     Indication: Osteopenia
     Dosage: ONCE A WEEK (QW)
     Route: 048
     Dates: end: 20161011
  3. FOSAMAX [Suspect]
     Active Substance: ALENDRONATE SODIUM
     Indication: Osteoporosis

REACTIONS (43)
  - Multiple fractures [Unknown]
  - Hip fracture [Recovered/Resolved]
  - Nephrolithiasis [Unknown]
  - Kidney infection [Unknown]
  - Ankle fracture [Recovered/Resolved]
  - Blood loss anaemia [Unknown]
  - Neuropathy peripheral [Unknown]
  - Femur fracture [Recovered/Resolved]
  - Femur fracture [Unknown]
  - Surgery [Unknown]
  - Osteoporosis [Unknown]
  - Low turnover osteopathy [Unknown]
  - Depression [Unknown]
  - Anxiety [Unknown]
  - Vitamin D deficiency [Unknown]
  - Cervical polyp [Unknown]
  - Tooth loss [Unknown]
  - Varicose vein [Unknown]
  - Arthropathy [Unknown]
  - Lumbosacral radiculopathy [Unknown]
  - Myxoid cyst [Unknown]
  - Essential hypertension [Unknown]
  - Arthritis [Unknown]
  - Fall [Unknown]
  - Intervertebral disc degeneration [Unknown]
  - Foot fracture [Unknown]
  - Tibia fracture [Unknown]
  - Head injury [Unknown]
  - Stress fracture [Unknown]
  - Pain in extremity [Unknown]
  - Oedema peripheral [Not Recovered/Not Resolved]
  - Ankle fracture [Unknown]
  - Foot fracture [Unknown]
  - Back pain [Unknown]
  - Lumbosacral radiculopathy [Unknown]
  - Pain in extremity [Unknown]
  - Paraesthesia [Unknown]
  - Spinal osteoarthritis [Unknown]
  - Stenosis [Unknown]
  - Pain in extremity [Unknown]
  - Hypoaesthesia [Unknown]
  - Paraesthesia [Unknown]
  - Myxoid cyst [Unknown]

NARRATIVE: CASE EVENT DATE: 20000101
